FAERS Safety Report 11067501 (Version 4)
Quarter: 2015Q2

REPORT INFORMATION
  Report Type: Spontaneous
  Country: JP (occurrence: JP)
  Receive Date: 20150427
  Receipt Date: 20150618
  Transmission Date: 20150821
  Serious: Yes (Other)
  Sender: FDA-Public Use
  Company Number: JP-009507513-1504JPN001534

PATIENT
  Age: 56 Year
  Sex: Male
  Weight: 75 kg

DRUGS (5)
  1. PEGINTRON [Suspect]
     Active Substance: PEGINTERFERON ALFA-2B
     Dosage: 50 MICROGRAM, PER WEEK
     Route: 058
     Dates: start: 20150209, end: 20150412
  2. VANIHEP CAPSULES 150MG [Suspect]
     Active Substance: VANIPREVIR
     Indication: CHRONIC HEPATITIS C
     Dosage: 300 MG, 2 TIMES A DAY
     Route: 048
     Dates: start: 20150202, end: 20150413
  3. PEGINTRON [Suspect]
     Active Substance: PEGINTERFERON ALFA-2B
     Indication: CHRONIC HEPATITIS C
     Dosage: 100 MICROGRAM, PER WEEK
     Route: 058
     Dates: start: 20150202, end: 20150208
  4. PEGINTRON [Suspect]
     Active Substance: PEGINTERFERON ALFA-2B
     Dosage: 25 MICROGRAM, PER WEEK
     Route: 058
     Dates: start: 20150413, end: 20150413
  5. REBETOL [Suspect]
     Active Substance: RIBAVIRIN
     Indication: CHRONIC HEPATITIS C
     Dosage: 400 MG, TWICE A DAY
     Route: 048
     Dates: start: 20150202, end: 20150413

REACTIONS (3)
  - Alanine aminotransferase increased [Not Recovered/Not Resolved]
  - Retinitis [Recovered/Resolved]
  - Aspartate aminotransferase increased [Not Recovered/Not Resolved]

NARRATIVE: CASE EVENT DATE: 20150204
